FAERS Safety Report 6580955-X (Version None)
Quarter: 2010Q1

REPORT INFORMATION
  Report Type: 
  Country: None (occurrence: None)
  Receive Date: 20100215
  Receipt Date: 20100204
  Transmission Date: 20100710
  Serious: Yes (Death, Hospitalization, Other)
  Sender: FDA-Public Use
  Company Number: US-AMGEN-QUU390901

PATIENT
  Sex: Female

DRUGS (1)
  1. ENBREL [Suspect]
     Indication: RHEUMATOID ARTHRITIS
     Route: 058
     Dates: start: 20001214

REACTIONS (4)
  - CEREBROVASCULAR ACCIDENT [None]
  - MALNUTRITION [None]
  - RHEUMATOID ARTHRITIS [None]
  - TUBERCULOSIS [None]
